FAERS Safety Report 5906767-5 (Version None)
Quarter: 2008Q3

REPORT INFORMATION
  Report Type: 
  Country: None (occurrence: None)
  Receive Date: 20080930
  Receipt Date: 20080915
  Transmission Date: 20090109
  Serious: Yes (Disabling)
  Sender: FDA-Public Use
  Company Number: 2008S1016901

PATIENT
  Age: 51 Year
  Sex: Female

DRUGS (5)
  1. MIRTAZAPINE [Suspect]
     Indication: ANXIETY
     Dosage: 45 MG; ;ORAL, 30 MG; ;ORAL
     Route: 048
     Dates: end: 20080824
  2. MIRTAZAPINE [Suspect]
     Indication: PANIC ATTACK
     Dosage: 45 MG; ;ORAL, 30 MG; ;ORAL
     Route: 048
     Dates: end: 20080824
  3. MIRTAZAPINE [Suspect]
     Indication: ANXIETY
     Dosage: 45 MG; ;ORAL, 30 MG; ;ORAL
     Route: 048
     Dates: start: 20070801
  4. MIRTAZAPINE [Suspect]
     Indication: PANIC ATTACK
     Dosage: 45 MG; ;ORAL, 30 MG; ;ORAL
     Route: 048
     Dates: start: 20070801
  5. LANSOPRAZOLE [Concomitant]

REACTIONS (2)
  - ANXIETY [None]
  - CONDITION AGGRAVATED [None]
